FAERS Safety Report 13433798 (Version 1)
Quarter: 2017Q2

REPORT INFORMATION
  Report Type: Spontaneous
  Country: US (occurrence: US)
  Receive Date: 20170412
  Receipt Date: 20170412
  Transmission Date: 20170830
  Serious: Yes (Other)
  Sender: FDA-Public Use
  Company Number: US-BAYER-2017-065814

PATIENT
  Age: 42 Year
  Sex: Female

DRUGS (1)
  1. BETASERON [Suspect]
     Active Substance: INTERFERON BETA-1B
     Indication: MULTIPLE SCLEROSIS
     Dosage: UNK

REACTIONS (7)
  - Depression [None]
  - Balance disorder [None]
  - Pyrexia [None]
  - Multiple sclerosis relapse [None]
  - Coordination abnormal [None]
  - Fatigue [None]
  - Influenza [None]

NARRATIVE: CASE EVENT DATE: 20170404
